FAERS Safety Report 20177332 (Version 1)
Quarter: 2021Q4

REPORT INFORMATION
  Report Type: Report from Study
  Country: US (occurrence: US)
  Receive Date: 20211213
  Receipt Date: 20211213
  Transmission Date: 20220303
  Serious: No
  Sender: FDA-Public Use
  Company Number: US-NOVARTISTESTPH-NVSC2021US282690

PATIENT
  Age: 32 Year
  Sex: Female

DRUGS (1)
  1. GLATOPA [Suspect]
     Active Substance: GLATIRAMER ACETATE
     Indication: Product used for unknown indication
     Dosage: 40 MG, TIW
     Route: 058
     Dates: start: 20211206, end: 20211208

REACTIONS (2)
  - Injection site reaction [Unknown]
  - Rash erythematous [Unknown]

NARRATIVE: CASE EVENT DATE: 20211208
